FAERS Safety Report 23012748 (Version 5)
Quarter: 2023Q4

REPORT INFORMATION
  Report Type: Report from Study
  Country: US (occurrence: US)
  Receive Date: 20230930
  Receipt Date: 20231109
  Transmission Date: 20240109
  Serious: Yes (Hospitalization, Other)
  Sender: FDA-Public Use
  Company Number: US-002147023-NVSC2023US211162

PATIENT
  Sex: Male

DRUGS (4)
  1. ENTRESTO [Suspect]
     Active Substance: SACUBITRIL\VALSARTAN
     Indication: Cardiac failure chronic
     Dosage: 2 DOSAGE FORM, QD 1 DOSAGE FORM, BID (24/26 MG, BID)
     Route: 048
     Dates: start: 202309
  2. LOSARTAN [Suspect]
     Active Substance: LOSARTAN
     Indication: Product used for unknown indication
     Dosage: UNK
     Route: 065
  3. CLOPIDOGREL [Suspect]
     Active Substance: CLOPIDOGREL BISULFATE
     Indication: Stent placement
     Dosage: UNK
     Route: 065
  4. JARDIANCE [Concomitant]
     Active Substance: EMPAGLIFLOZIN
     Indication: Product used for unknown indication
     Dosage: UNK
     Route: 065

REACTIONS (12)
  - Pneumonia [Unknown]
  - Panic attack [Unknown]
  - Dyspnoea [Unknown]
  - Insomnia [Unknown]
  - Fluid retention [Unknown]
  - Weight decreased [Unknown]
  - Feeling of despair [Recovering/Resolving]
  - Nervousness [Recovering/Resolving]
  - Dyspnoea exertional [Unknown]
  - Anxiety [Unknown]
  - Feeling abnormal [Unknown]
  - Contraindicated product administered [Unknown]
